FAERS Safety Report 22289250 (Version 1)
Quarter: 2023Q2

REPORT INFORMATION
  Report Type: Spontaneous
  Country: US (occurrence: None)
  Receive Date: 20230504
  Receipt Date: 20230504
  Transmission Date: 20230721
  Serious: Yes (Other)
  Sender: FDA-Public Use
  Company Number: None

PATIENT
  Age: 34 Year
  Sex: Female
  Weight: 123.75 kg

DRUGS (1)
  1. HIZENTRA [Suspect]
     Active Substance: HUMAN IMMUNOGLOBULIN G
     Indication: Hypogammaglobulinaemia
     Dosage: OTHER FREQUENCY : ONCE WEEKLY;?
     Route: 058
     Dates: start: 20221031

REACTIONS (6)
  - Injection site pruritus [None]
  - Injection site erythema [None]
  - Product quality issue [None]
  - Injection site swelling [None]
  - Injection site warmth [None]
  - Injection site discharge [None]

NARRATIVE: CASE EVENT DATE: 20230427
